FAERS Safety Report 5222450-6 (Version None)
Quarter: 2007Q1

REPORT INFORMATION
  Report Type: 
  Country: None (occurrence: None)
  Receive Date: 20070129
  Receipt Date: 20061102
  Transmission Date: 20070707
  Serious: Yes (Hospitalization)
  Sender: FDA-Public Use
  Company Number: US-BRISTOL-MYERS SQUIBB COMPANY-13565932

PATIENT
  Sex: Female

DRUGS (6)
  1. ERBITUX [Suspect]
     Indication: NASOPHARYNGEAL CANCER
     Route: 042
     Dates: start: 20061031, end: 20061031
  2. CISPLATIN [Suspect]
     Indication: NASOPHARYNGEAL CANCER
     Dates: start: 20061031, end: 20061031
  3. TAXOTERE [Suspect]
     Indication: NASOPHARYNGEAL CANCER
     Dates: start: 20061031, end: 20061031
  4. DIPHENHYDRAMINE HCL [Concomitant]
     Indication: PREMEDICATION
     Route: 042
     Dates: start: 20061031, end: 20061031
  5. DECADRON [Concomitant]
     Indication: PREMEDICATION
     Route: 042
     Dates: start: 20061031, end: 20061031
  6. ALOXI [Concomitant]
     Indication: PREMEDICATION
     Route: 042
     Dates: start: 20061031, end: 20061031

REACTIONS (5)
  - CARDIO-RESPIRATORY ARREST [None]
  - ERYTHEMA [None]
  - LOSS OF CONSCIOUSNESS [None]
  - PRURITUS [None]
  - URINARY INCONTINENCE [None]
